FAERS Safety Report 16621396 (Version 3)
Quarter: 2019Q3

REPORT INFORMATION
  Report Type: Report from Study
  Country: GT (occurrence: GT)
  Receive Date: 20190723
  Receipt Date: 20190830
  Transmission Date: 20191004
  Serious: Yes (Other)
  Sender: FDA-Public Use
  Company Number: PHHY2019GT166952

PATIENT
  Age: 57 Year
  Sex: Female
  Weight: 95.24 kg

DRUGS (12)
  1. APROVEL [Concomitant]
     Active Substance: IRBESARTAN
     Indication: PRODUCT USED FOR UNKNOWN INDICATION
     Dosage: 150 MG, UNK
     Route: 065
     Dates: start: 2000
  2. PREGALEX [Concomitant]
     Indication: NECK PAIN
     Dosage: 150 MG, BID
     Route: 065
     Dates: start: 201812, end: 201905
  3. SCAPHO [Suspect]
     Active Substance: SECUKINUMAB
     Indication: ANKYLOSING SPONDYLITIS
     Dosage: 150 MG, QMO
     Route: 058
     Dates: start: 20181206
  4. PREGALEX [Concomitant]
     Indication: BACK PAIN
  5. MONTELUKAST SODIUM. [Suspect]
     Active Substance: MONTELUKAST SODIUM
     Indication: PRODUCT USED FOR UNKNOWN INDICATION
     Dosage: 10 MG, UNK
     Route: 065
     Dates: start: 2015
  6. ALLEGRA [Concomitant]
     Active Substance: FEXOFENADINE HYDROCHLORIDE
     Indication: PRODUCT USED FOR UNKNOWN INDICATION
     Dosage: 120 MG, UNK
     Route: 065
     Dates: start: 2000
  7. SCAPHO [Interacting]
     Active Substance: SECUKINUMAB
     Dosage: UNK
     Route: 058
  8. MODURETIC 5-50 [Concomitant]
     Active Substance: AMILORIDE HYDROCHLORIDE\HYDROCHLOROTHIAZIDE
     Indication: PRODUCT USED FOR UNKNOWN INDICATION
     Dosage: 1 DF (5/50 MG), UNK
     Route: 065
     Dates: start: 2000
  9. EUTIROX [Concomitant]
     Active Substance: LEVOTHYROXINE SODIUM
     Indication: PRODUCT USED FOR UNKNOWN INDICATION
     Dosage: 25 MG, UNK
     Route: 065
     Dates: start: 2017
  10. VIARTRIL S [Concomitant]
     Indication: PRODUCT USED FOR UNKNOWN INDICATION
     Dosage: 2 DF (500 MG), UNK
     Route: 065
  11. GLISULIN [Concomitant]
     Indication: PRODUCT USED FOR UNKNOWN INDICATION
     Dosage: 850 MG, UNK
     Route: 065
     Dates: start: 2017
  12. PREGALEX [Concomitant]
     Indication: MUSCULOSKELETAL PAIN
     Dosage: 75 MG, UNK
     Route: 065
     Dates: start: 201905

REACTIONS (26)
  - Scoliosis [Unknown]
  - Osteoarthritis [Unknown]
  - Back pain [Not Recovered/Not Resolved]
  - Migraine [Recovering/Resolving]
  - Asthma [Unknown]
  - Intraocular pressure test abnormal [Unknown]
  - Ulcer [Unknown]
  - Eye pain [Unknown]
  - Muscle spasms [Unknown]
  - Musculoskeletal pain [Not Recovered/Not Resolved]
  - Intervertebral disc protrusion [Unknown]
  - Malaise [Unknown]
  - Blood glucose increased [Unknown]
  - Arthralgia [Unknown]
  - Spinal flattening [Unknown]
  - Intervertebral disc space narrowing [Unknown]
  - Intervertebral disc compression [Unknown]
  - Fall [Unknown]
  - Arthropathy [Unknown]
  - Wound infection [Unknown]
  - Vertigo [Recovered/Resolved]
  - Vision blurred [Unknown]
  - Facet joint syndrome [Unknown]
  - Aortic arteriosclerosis [Unknown]
  - Neck pain [Not Recovered/Not Resolved]
  - Joint injury [Unknown]

NARRATIVE: CASE EVENT DATE: 20190422
